FAERS Safety Report 17553690 (Version 1)
Quarter: 2020Q1

REPORT INFORMATION
  Report Type: Report from Study
  Country: None (occurrence: GR)
  Receive Date: 20200318
  Receipt Date: 20200318
  Transmission Date: 20200409
  Serious: Yes (Hospitalization)
  Sender: FDA-Public Use
  Company Number: GR-ABBVIE-18S-066-2493142-00

PATIENT
  Age: 70 Year
  Sex: Female
  Weight: 69 kg

DRUGS (7)
  1. DUODOPA [Suspect]
     Active Substance: CARBIDOPA\LEVODOPA
     Indication: PARKINSON^S DISEASE
     Dosage: MD:10.0ML; CRD:4.0ML/H; ED:1.0ML
     Route: 050
     Dates: start: 20180906, end: 20180916
  2. DUODOPA [Suspect]
     Active Substance: CARBIDOPA\LEVODOPA
     Dosage: MD: 3.8ML; CR: 2ML/H; EXTRA DOSE: 0.2ML
     Route: 050
  3. DUODOPA [Suspect]
     Active Substance: CARBIDOPA\LEVODOPA
     Dosage: MD:8.0ML; CRD:4.0ML/H; ED:1.0ML
     Route: 050
     Dates: start: 20180919, end: 2018
  4. DUODOPA [Suspect]
     Active Substance: CARBIDOPA\LEVODOPA
     Dosage: MD:3.0ML; CR 2.2ML/H; EXTRA DOSE:1.0ML
     Route: 050
     Dates: start: 2018
  5. DUODOPA [Suspect]
     Active Substance: CARBIDOPA\LEVODOPA
     Dosage: MD:8.0ML; CR:1.6ML/H; EXTRA DOSE:1.0ML
     Route: 050
     Dates: start: 20181010, end: 2018
  6. DUODOPA [Suspect]
     Active Substance: CARBIDOPA\LEVODOPA
     Dosage: CONTINUOUS RATE: 0.9ML/H; EXTRA DOSE: 0.2ML [24H USE OF THE PUMP]
     Route: 050
  7. ARICEPT [Concomitant]
     Active Substance: DONEPEZIL HYDROCHLORIDE
     Indication: PRODUCT USED FOR UNKNOWN INDICATION
     Route: 048

REACTIONS (12)
  - Fall [Not Recovered/Not Resolved]
  - Balance disorder [Not Recovered/Not Resolved]
  - Haematemesis [Recovered/Resolved]
  - Hyperkinesia [Recovered/Resolved]
  - Device occlusion [Unknown]
  - Dysphagia [Not Recovered/Not Resolved]
  - On and off phenomenon [Unknown]
  - Walking aid user [Not Recovered/Not Resolved]
  - Off label use [Unknown]
  - Vomiting [Recovered/Resolved]
  - Hallucination [Recovering/Resolving]
  - Hyperkinesia [Not Recovered/Not Resolved]

NARRATIVE: CASE EVENT DATE: 20180916
